FAERS Safety Report 25841882 (Version 1)
Quarter: 2025Q3

REPORT INFORMATION
  Report Type: Spontaneous
  Country: MX (occurrence: MX)
  Receive Date: 20250924
  Receipt Date: 20250924
  Transmission Date: 20251020
  Serious: Yes (Other)
  Sender: ELI LILLY AND COMPANY
  Company Number: MX-ELI_LILLY_AND_COMPANY-MX202505022226

PATIENT
  Age: 76 Year
  Sex: Female

DRUGS (2)
  1. VERZENIO [Suspect]
     Active Substance: ABEMACICLIB
     Indication: Breast cancer
     Dosage: 150 MG, BID
     Route: 048
     Dates: start: 202501
  2. LETROZOLE [Concomitant]
     Active Substance: LETROZOLE
     Indication: Breast cancer

REACTIONS (22)
  - Fall [Unknown]
  - Dizziness [Unknown]
  - Diarrhoea haemorrhagic [Unknown]
  - Pulmonary mass [Unknown]
  - Weight decreased [Unknown]
  - Taste disorder [Unknown]
  - Depression [Unknown]
  - General physical health deterioration [Unknown]
  - Head injury [Unknown]
  - Haemorrhoids [Unknown]
  - Haemorrhage [Unknown]
  - Abdominal discomfort [Not Recovered/Not Resolved]
  - Somnolence [Recovering/Resolving]
  - Food intolerance [Recovering/Resolving]
  - Abdominal pain upper [Not Recovered/Not Resolved]
  - Vomiting [Recovered/Resolved]
  - Diarrhoea [Not Recovered/Not Resolved]
  - Decreased appetite [Recovering/Resolving]
  - Listless [Unknown]
  - Asthenia [Unknown]
  - Fatigue [Recovering/Resolving]
  - Headache [Unknown]

NARRATIVE: CASE EVENT DATE: 20250604
